FAERS Safety Report 12666180 (Version 1)
Quarter: 2016Q3

REPORT INFORMATION
  Report Type: Spontaneous
  Country: US (occurrence: US)
  Receive Date: 20160818
  Receipt Date: 20160818
  Transmission Date: 20161109
  Serious: No
  Sender: FDA-Public Use
  Company Number: US-JAZZ-2016-US-005719

PATIENT
  Sex: Female

DRUGS (21)
  1. XYREM [Suspect]
     Active Substance: SODIUM OXYBATE
     Indication: NARCOLEPSY
     Dosage: 2.25 G, BID
     Route: 048
     Dates: start: 201104, end: 201104
  2. CELEBREX [Concomitant]
     Active Substance: CELECOXIB
  3. MIRAPEX [Concomitant]
     Active Substance: PRAMIPEXOLE DIHYDROCHLORIDE
  4. ONE A DAY WOMEN^S [Concomitant]
     Active Substance: MINERALS\VITAMINS
  5. XANAX [Concomitant]
     Active Substance: ALPRAZOLAM
  6. CELEBREX [Concomitant]
     Active Substance: CELECOXIB
  7. FISH OIL [Concomitant]
     Active Substance: FISH OIL
  8. XYREM [Suspect]
     Active Substance: SODIUM OXYBATE
     Dosage: 3.75 G, BID
     Route: 048
     Dates: start: 201201
  9. CYMBALTA [Concomitant]
     Active Substance: DULOXETINE HYDROCHLORIDE
  10. NEXIUM [Concomitant]
     Active Substance: ESOMEPRAZOLE MAGNESIUM
  11. PROMETRIUM [Concomitant]
     Active Substance: PROGESTERONE
  12. SIMVASTATIN. [Concomitant]
     Active Substance: SIMVASTATIN
  13. CYMBALTA [Concomitant]
     Active Substance: DULOXETINE HYDROCHLORIDE
  14. NEXIUM [Concomitant]
     Active Substance: ESOMEPRAZOLE MAGNESIUM
  15. TRAMADOL HCL [Concomitant]
     Active Substance: TRAMADOL HYDROCHLORIDE
  16. XYREM [Suspect]
     Active Substance: SODIUM OXYBATE
     Dosage: DOSE ADJUSTMENTS
     Route: 048
  17. EVAMIST [Concomitant]
     Active Substance: ESTRADIOL
  18. FOLIC ACID. [Concomitant]
     Active Substance: FOLIC ACID
  19. PERCOCET [Concomitant]
     Active Substance: ACETAMINOPHEN\OXYCODONE HYDROCHLORIDE
  20. ESTRADIOL. [Concomitant]
     Active Substance: ESTRADIOL
  21. VITAMIN D3 [Concomitant]
     Active Substance: CHOLECALCIFEROL

REACTIONS (1)
  - Cough [Not Recovered/Not Resolved]
